FAERS Safety Report 6499736-0 (Version None)
Quarter: 2009Q4

REPORT INFORMATION
  Report Type: 
  Country: None (occurrence: None)
  Receive Date: 20091215
  Receipt Date: 20091202
  Transmission Date: 20100525
  Serious: Yes (Other)
  Sender: FDA-Public Use
  Company Number: US-BAYER-200941613NA

PATIENT

DRUGS (2)
  1. BETASERON [Suspect]
     Indication: MULTIPLE SCLEROSIS
     Route: 058
     Dates: start: 20070101, end: 20091001
  2. AMANTADINE [Concomitant]
     Route: 065

REACTIONS (4)
  - CANDIDIASIS [None]
  - IMPAIRED HEALING [None]
  - SKIN ULCER [None]
  - WOUND INFECTION STAPHYLOCOCCAL [None]
